FAERS Safety Report 12525947 (Version 5)
Quarter: 2016Q3

REPORT INFORMATION
  Report Type: Report from Study
  Country: US (occurrence: US)
  Receive Date: 20160705
  Receipt Date: 20160817
  Transmission Date: 20161109
  Serious: Yes (Hospitalization, Other)
  Sender: FDA-Public Use
  Company Number: US-GILEAD-2016-0221745

PATIENT
  Age: 71 Year
  Sex: Female

DRUGS (2)
  1. ADCIRCA [Concomitant]
     Active Substance: TADALAFIL
  2. AMBRISENTAN [Suspect]
     Active Substance: AMBRISENTAN
     Indication: PRODUCT USED FOR UNKNOWN INDICATION
     Dosage: 10 MG, UNK
     Route: 065
     Dates: start: 20150519

REACTIONS (11)
  - Eye disorder [Unknown]
  - Scleroderma [Unknown]
  - Lower limb fracture [Unknown]
  - Ankle fracture [Recovered/Resolved]
  - Arterial disorder [Unknown]
  - Lower limb fracture [Unknown]
  - Gait disturbance [Unknown]
  - Dyspnoea [Unknown]
  - Cyanosis [Unknown]
  - Pulmonary hypertension [Unknown]
  - Fall [Recovered/Resolved]

NARRATIVE: CASE EVENT DATE: 201512
